FAERS Safety Report 8053550-3 (Version None)
Quarter: 2011Q4

REPORT INFORMATION
  Report Type: 
  Country: None (occurrence: None)
  Receive Date: 20111213
  Receipt Date: 20110929
  Transmission Date: 20120403
  Serious: No
  Sender: FDA-Public Use
  Company Number: 2011SP046240

PATIENT
  Age: 69 Year
  Sex: Female

DRUGS (2)
  1. CLOZARIL [Concomitant]
  2. SAPHRIS [Suspect]
     Indication: SCHIZOPHRENIA
     Dosage: 10 MG;BID

REACTIONS (1)
  - DROOLING [None]
